FAERS Safety Report 6831504-X (Version None)
Quarter: 2010Q3

REPORT INFORMATION
  Report Type: 
  Country: None (occurrence: None)
  Receive Date: 20100712
  Receipt Date: 20100628
  Transmission Date: 20110219
  Serious: Yes (Other)
  Sender: FDA-Public Use
  Company Number: PHHY2010US29148

PATIENT
  Sex: Female

DRUGS (2)
  1. GLEEVEC [Suspect]
     Dosage: 400 MG
     Route: 048
  2. LEVOXYL [Suspect]

REACTIONS (6)
  - BLOOD GLUCOSE INCREASED [None]
  - BLOOD PRESSURE INCREASED [None]
  - OEDEMA PERIPHERAL [None]
  - PSORIASIS [None]
  - RASH [None]
  - THYROIDECTOMY [None]
